FAERS Safety Report 7064339-6 (Version None)
Quarter: 2010Q4

REPORT INFORMATION
  Report Type: 
  Country: None (occurrence: None)
  Receive Date: 20101027
  Receipt Date: 20101021
  Transmission Date: 20110411
  Serious: Yes (Hospitalization)
  Sender: FDA-Public Use
  Company Number: NL-MPIJNJ-2010-02434

PATIENT

DRUGS (12)
  1. VELCADE [Suspect]
     Indication: MULTIPLE MYELOMA
     Dosage: 2.5 MG, UNK
     Dates: start: 20090818, end: 20091106
  2. PREDNISOLONE [Concomitant]
     Dosage: 25 MG, UNK
     Route: 048
     Dates: end: 20091029
  3. METFORMIN [Concomitant]
     Indication: DIABETES MELLITUS
     Dosage: 1700 MG, UNK
     Route: 048
  4. OMEPRAZOLE [Concomitant]
     Indication: ABDOMINAL DISCOMFORT
     Dosage: 20 MG, UNK
     Route: 048
  5. TOLBUTAMIDE [Concomitant]
     Indication: DIABETES MELLITUS
     Dosage: 1000 MG, UNK
     Route: 048
  6. METOCLOPRAMIDE [Concomitant]
     Indication: PROPHYLAXIS OF NAUSEA AND VOMITING
     Dosage: 10 MG, UNK
     Route: 048
  7. DICLOFENAC SODIUM [Concomitant]
     Dosage: 150 MG, UNK
     Route: 048
     Dates: start: 20091002
  8. DICLOFENAC SODIUM [Concomitant]
     Dosage: 25 MG, UNK
     Route: 048
     Dates: start: 20090101, end: 20090101
  9. APD [Concomitant]
     Indication: PROPHYLAXIS
     Dosage: UNK
     Route: 042
     Dates: start: 20090929
  10. GLUCOPHAGE [Concomitant]
     Indication: DIABETES MELLITUS
     Dosage: 10 MG, UNK
     Route: 048
  11. AMITRIPTYLINE HCL [Concomitant]
     Dosage: 25 MG, UNK
     Route: 048
  12. FENTANYL CITRATE [Concomitant]
     Dosage: 12 MG, UNK
     Route: 048

REACTIONS (1)
  - OSTEOARTHRITIS [None]
